FAERS Safety Report 20966342 (Version 1)
Quarter: 2022Q2

REPORT INFORMATION
  Report Type: Spontaneous
  Country: US (occurrence: US)
  Receive Date: 20220616
  Receipt Date: 20220616
  Transmission Date: 20220721
  Serious: No
  Sender: FDA-Public Use
  Company Number: US-drreddys-SPO/USA/22/0151006

PATIENT
  Age: 19 Year
  Sex: Female

DRUGS (1)
  1. ZENATANE [Suspect]
     Active Substance: ISOTRETINOIN
     Indication: Acne cystic
     Dosage: RMA ISSUE DATE: 06 MAY 2022 09:37:23 AM, 05 APRIL 2022 01:45:34 PM, 24 FEBRUARY 2022 10:30:22 AM AND

REACTIONS (2)
  - Treatment noncompliance [Unknown]
  - Product use in unapproved indication [Unknown]
